FAERS Safety Report 16248775 (Version 2)
Quarter: 2019Q2

REPORT INFORMATION
  Report Type: Spontaneous
  Country: HK (occurrence: HK)
  Receive Date: 20190429
  Receipt Date: 20190508
  Transmission Date: 20190711
  Serious: Yes (Death)
  Sender: FDA-Public Use
  Company Number: HK-ROCHE-2307879

PATIENT
  Age: 54 Year
  Sex: Male

DRUGS (2)
  1. TECENTRIQ [Suspect]
     Active Substance: ATEZOLIZUMAB
     Indication: NON-SMALL CELL LUNG CANCER
     Route: 042
     Dates: start: 20180322
  2. OXALIPLATIN. [Concomitant]
     Active Substance: OXALIPLATIN
     Dosage: 300 UNIT NOT REPORTED
     Route: 042
     Dates: start: 20180117, end: 20180611

REACTIONS (2)
  - Acute kidney injury [Fatal]
  - Anuria [Fatal]

NARRATIVE: CASE EVENT DATE: 20181016
